FAERS Safety Report 7705054-2 (Version None)
Quarter: 2011Q3

REPORT INFORMATION
  Report Type: 
  Country: None (occurrence: None)
  Receive Date: 20110823
  Receipt Date: 20110810
  Transmission Date: 20111222
  Serious: Yes (Hospitalization, Other)
  Sender: FDA-Public Use
  Company Number: US-ABBOTT-11P-163-0706382-00

PATIENT
  Sex: Female
  Weight: 54.48 kg

DRUGS (12)
  1. ORTHO TRI-CYCLEN LO [Interacting]
     Indication: CONTRACEPTION
     Dates: end: 20110415
  2. HUMIRA [Interacting]
     Indication: COLITIS ULCERATIVE
     Dosage: DAY 15
     Route: 058
  3. MERCAPTOPURINE [Interacting]
     Indication: COLITIS ULCERATIVE
     Dates: end: 20110415
  4. MERCAPTOPURINE [Concomitant]
     Indication: COLITIS ULCERATIVE
  5. UNKNOWN STERIODS [Concomitant]
     Indication: COLITIS ULCERATIVE
  6. HUMIRA [Suspect]
     Indication: INFLAMMATORY BOWEL DISEASE
     Dosage: LOADING DOSE160MG
     Route: 058
     Dates: start: 20110121, end: 20110121
  7. HUMIRA [Interacting]
     Route: 058
     Dates: end: 20110415
  8. VITAMIN TAB [Interacting]
     Indication: VITAMIN SUPPLEMENTATION
     Dates: end: 20110415
  9. APRISO [Concomitant]
     Indication: PRODUCT USED FOR UNKNOWN INDICATION
     Dosage: 0.375 MGS- 6 TABS DAILY
  10. CODEINE SULFATE [Interacting]
     Indication: COUGH
  11. MERCAPTOPURINE [Concomitant]
     Indication: PRODUCT USED FOR UNKNOWN INDICATION
  12. APRISO [Interacting]
     Indication: COLITIS ULCERATIVE
     Dates: end: 20110415

REACTIONS (30)
  - NASAL CONGESTION [None]
  - ARTHRALGIA [None]
  - SCRATCH [None]
  - NASOPHARYNGITIS [None]
  - GASTROINTESTINAL INFLAMMATION [None]
  - STOMATITIS [None]
  - PRURITUS [None]
  - FATIGUE [None]
  - GINGIVAL SWELLING [None]
  - CHEST PAIN [None]
  - TUBULOINTERSTITIAL NEPHRITIS [None]
  - LYMPHADENOPATHY [None]
  - INFLAMMATION [None]
  - SYSTEMIC LUPUS ERYTHEMATOSUS [None]
  - PYREXIA [None]
  - ASTHENIA [None]
  - SKIN DISCOLOURATION [None]
  - RASH [None]
  - DRUG INTERACTION [None]
  - WOUND HAEMORRHAGE [None]
  - COLITIS [None]
  - PARANASAL SINUS HYPERSECRETION [None]
  - JOINT SWELLING [None]
  - OEDEMA MOUTH [None]
  - NEPHRITIS [None]
  - RED BLOOD CELL SEDIMENTATION RATE INCREASED [None]
  - ADVERSE DRUG REACTION [None]
  - URINARY TRACT INFLAMMATION [None]
  - COUGH [None]
  - OROPHARYNGEAL PAIN [None]
